FAERS Safety Report 7867328-4 (Version None)
Quarter: 2011Q4

REPORT INFORMATION
  Report Type: 
  Country: None (occurrence: None)
  Receive Date: 20111028
  Receipt Date: 20111021
  Transmission Date: 20120403
  Serious: Yes (Life-Threatening)
  Sender: FDA-Public Use
  Company Number: JP-PFIZER INC-2011237831

PATIENT
  Age: 77 Year
  Sex: Male

DRUGS (1)
  1. ESTRACYT [Suspect]
     Indication: PROSTATE CANCER
     Dosage: 626.8 MG/DAY
     Route: 048
     Dates: start: 20110817, end: 20110901

REACTIONS (1)
  - HEPATIC FUNCTION ABNORMAL [None]
